FAERS Safety Report 9411146 (Version 2)
Quarter: 2013Q3

REPORT INFORMATION
  Report Type: Spontaneous
  Country: US (occurrence: US)
  Receive Date: 20130721
  Receipt Date: 20130904
  Transmission Date: 20140515
  Serious: Yes (Hospitalization, Other)
  Sender: FDA-Public Use
  Company Number: PHEH2013US015279

PATIENT
  Age: 27 Year
  Sex: Female

DRUGS (2)
  1. TEGRETOL [Suspect]
     Indication: CONVULSION
     Dosage: 2.5 TSP, DAILY
  2. KLONOPIN [Concomitant]
     Dosage: UNK UKN, UNK

REACTIONS (5)
  - Grand mal convulsion [Unknown]
  - Overdose [Unknown]
  - Malaise [Unknown]
  - Anticonvulsant drug level increased [Recovered/Resolved]
  - Fatigue [Unknown]
